FAERS Safety Report 12069420 (Version 1)
Quarter: 2016Q1

REPORT INFORMATION
  Report Type: Spontaneous
  Country: GB (occurrence: GB)
  Receive Date: 20160211
  Receipt Date: 20160211
  Transmission Date: 20160526
  Serious: Yes (Disabling, Other)
  Sender: FDA-Public Use
  Company Number: GB-009507513-1602GBR004154

PATIENT

DRUGS (1)
  1. NEXPLANON [Suspect]
     Active Substance: ETONOGESTREL
     Dosage: UNK
     Route: 059

REACTIONS (7)
  - Vision blurred [Unknown]
  - Nerve injury [Unknown]
  - Blindness [Unknown]
  - Visual impairment [Unknown]
  - Amnesia [Unknown]
  - Visual acuity reduced [Unknown]
  - Hypoaesthesia [Unknown]
